FAERS Safety Report 5280079-8 (Version None)
Quarter: 2007Q1

REPORT INFORMATION
  Report Type: 
  Country: None (occurrence: None)
  Receive Date: 20070329
  Receipt Date: 20070315
  Transmission Date: 20070707
  Serious: Yes (Hospitalization)
  Sender: FDA-Public Use
  Company Number: HQWYE016119MAR07

PATIENT
  Age: 74 Year
  Sex: Female

DRUGS (3)
  1. ETANERCEPT [Suspect]
     Indication: RHEUMATOID ARTHRITIS
     Route: 058
     Dates: start: 20050601
  2. RIFAMPICIN [Concomitant]
     Indication: ANTIBIOTIC PROPHYLAXIS
     Dates: start: 20050701
  3. ISONIAZID [Concomitant]
     Indication: ANTIBIOTIC PROPHYLAXIS
     Dates: start: 20050601, end: 20050701

REACTIONS (1)
  - PROGRESSIVE MULTIFOCAL LEUKOENCEPHALOPATHY [None]
